FAERS Safety Report 13358199 (Version 3)
Quarter: 2017Q2

REPORT INFORMATION
  Report Type: Report from Study
  Country: US (occurrence: US)
  Receive Date: 20170322
  Receipt Date: 20170523
  Transmission Date: 20170830
  Serious: No
  Sender: FDA-Public Use
  Company Number: US-009507513-1703USA004333

PATIENT
  Sex: Female

DRUGS (1)
  1. ETONOGESTREL IMPLANT- UNKNOWN [Suspect]
     Active Substance: ETONOGESTREL
     Dosage: 1 IMPLANT
     Route: 059

REACTIONS (10)
  - Frustration tolerance decreased [Unknown]
  - Acne [Unknown]
  - Weight increased [Unknown]
  - Stress [Unknown]
  - Headache [Unknown]
  - Adverse drug reaction [Unknown]
  - Anxiety [Unknown]
  - Contusion [Unknown]
  - Breast pain [Unknown]
  - Mood swings [Unknown]
